FAERS Safety Report 4703749-6 (Version None)
Quarter: 2005Q2

REPORT INFORMATION
  Report Type: 
  Country: None (occurrence: None)
  Receive Date: 20050628
  Receipt Date: 20050615
  Transmission Date: 20051028
  Serious: Yes (Death, Other)
  Sender: FDA-Public Use
  Company Number: USA050394275

PATIENT
  Age: 40 Year
  Sex: Male
  Weight: 82 kg

DRUGS (9)
  1. XIGRIS [Suspect]
     Indication: SEPSIS
     Dosage: 24 UG/KG/HR
  2. PRIMAXIN [Concomitant]
  3. STEROIDS [Concomitant]
  4. HEPARIN [Concomitant]
  5. INSULIN [Concomitant]
  6. CYCLOSPORINE [Concomitant]
  7. MYCOPHENOLATE MOFETIL [Concomitant]
  8. VASOPRESSIN INJECTION [Concomitant]
  9. NEOSYNEPHRINE (PHENYLEPHRINE HYDROCHLORIDE) [Concomitant]

REACTIONS (8)
  - CANDIDIASIS [None]
  - CATHETER SITE HAEMORRHAGE [None]
  - CONDITION AGGRAVATED [None]
  - DISSEMINATED INTRAVASCULAR COAGULATION [None]
  - FUNGAEMIA [None]
  - GASTRITIS EROSIVE [None]
  - GASTROINTESTINAL HAEMORRHAGE [None]
  - SEPSIS [None]
